FAERS Safety Report 9513354 (Version 1)
Quarter: 2013Q3

REPORT INFORMATION
  Report Type: Spontaneous
  Country: PL (occurrence: PL)
  Receive Date: 20130910
  Receipt Date: 20130910
  Transmission Date: 20140515
  Serious: Yes (Other)
  Sender: FDA-Public Use
  Company Number: PL-ACTAVIS-2013-16044

PATIENT
  Age: 33 Year
  Sex: Male
  Weight: 79 kg

DRUGS (1)
  1. DICLOFENAC (UNKNOWN) [Suspect]
     Indication: ANKYLOSING SPONDYLITIS
     Dosage: 150 MG, UNKNOWN
     Route: 048
     Dates: start: 201305, end: 201306

REACTIONS (2)
  - Liver disorder [Unknown]
  - Alanine aminotransferase increased [Unknown]
